FAERS Safety Report 6819221-3 (Version None)
Quarter: 2010Q3

REPORT INFORMATION
  Report Type: 
  Country: None (occurrence: None)
  Receive Date: 20100707
  Receipt Date: 20100702
  Transmission Date: 20110219
  Serious: No
  Sender: FDA-Public Use
  Company Number: US-ASTRAZENECA-2007UW21497

PATIENT
  Age: 58 Year
  Sex: Female
  Weight: 86.2 kg

DRUGS (23)
  1. SEROQUEL [Suspect]
     Indication: ANXIETY
     Dosage: 75 MG TO 200 MG
     Route: 048
     Dates: start: 20050301
  2. SEROQUEL [Suspect]
     Indication: DEPRESSION
     Dosage: 75 MG TO 200 MG
     Route: 048
     Dates: start: 20050301
  3. SEROQUEL [Suspect]
     Indication: BIPOLAR DISORDER
     Dosage: 75 MG TO 200 MG
     Route: 048
     Dates: start: 20050301
  4. SEROQUEL [Suspect]
     Indication: SLEEP DISORDER
     Dosage: 75 MG TO 200 MG
     Route: 048
     Dates: start: 20050301
  5. SEROQUEL [Suspect]
     Indication: POST-TRAUMATIC STRESS DISORDER
     Dosage: 75 MG TO 200 MG
     Route: 048
     Dates: start: 20050301
  6. SEROQUEL [Suspect]
     Dosage: 25- 200 MG
     Route: 048
     Dates: start: 20050817
  7. SEROQUEL [Suspect]
     Dosage: 25- 200 MG
     Route: 048
     Dates: start: 20050817
  8. SEROQUEL [Suspect]
     Dosage: 25- 200 MG
     Route: 048
     Dates: start: 20050817
  9. SEROQUEL [Suspect]
     Dosage: 25- 200 MG
     Route: 048
     Dates: start: 20050817
  10. SEROQUEL [Suspect]
     Dosage: 25- 200 MG
     Route: 048
     Dates: start: 20050817
  11. LEXAPRO [Concomitant]
     Dosage: 20MG-30MG
     Route: 048
  12. LAMICTAL [Concomitant]
     Dosage: 50MG-200MG DAILY
     Route: 048
  13. CAMPRAL [Concomitant]
     Dosage: 333MG-1998MG DAILY
     Route: 048
  14. PREMARIN [Concomitant]
     Dosage: 0.3MG-2.5MG
     Route: 048
  15. CRESTOR [Concomitant]
     Route: 048
  16. PRINIVIL [Concomitant]
     Indication: ESSENTIAL HYPERTENSION
     Route: 048
  17. LIBRIUM [Concomitant]
     Dosage: 10MG-30MG DAILY
     Route: 048
  18. THIAMINE [Concomitant]
     Route: 048
  19. FOLIC ACID [Concomitant]
     Route: 048
  20. FLAGYL [Concomitant]
     Indication: VAGINITIS BACTERIAL
     Dosage: 500MG-2000MG
     Route: 048
  21. LOTENSIN [Concomitant]
     Route: 048
  22. HALDOL [Concomitant]
  23. THORAZINE [Concomitant]

REACTIONS (15)
  - ARTHRALGIA [None]
  - BIPOLAR DISORDER [None]
  - BLOOD TRIGLYCERIDES INCREASED [None]
  - BREAST MASS [None]
  - CARPAL TUNNEL SYNDROME [None]
  - DIABETES MELLITUS [None]
  - DIABETIC COMPLICATION [None]
  - DIZZINESS [None]
  - FOREARM FRACTURE [None]
  - HYPERLIPIDAEMIA [None]
  - JOINT EFFUSION [None]
  - POST-TRAUMATIC STRESS DISORDER [None]
  - SYNOVITIS [None]
  - TYPE 2 DIABETES MELLITUS [None]
  - WRIST FRACTURE [None]
